FAERS Safety Report 7157539-8 (Version None)
Quarter: 2010Q4

REPORT INFORMATION
  Report Type: 
  Country: None (occurrence: None)
  Receive Date: 20101214
  Receipt Date: 20100420
  Transmission Date: 20110411
  Serious: No
  Sender: FDA-Public Use
  Company Number: US-ASTRAZENECA-2010SE07643

PATIENT
  Age: 57 Year
  Sex: Female
  Weight: 73.9 kg

DRUGS (3)
  1. CRESTOR [Suspect]
     Indication: BLOOD CHOLESTEROL INCREASED
     Route: 048
     Dates: start: 20070101, end: 20090101
  2. CRESTOR [Suspect]
     Route: 048
     Dates: start: 20090101
  3. ASPIRIN [Concomitant]

REACTIONS (4)
  - DRY MOUTH [None]
  - GLOSSODYNIA [None]
  - TONGUE DISCOLOURATION [None]
  - TONGUE ULCERATION [None]
